FAERS Safety Report 13277336 (Version 1)
Quarter: 2017Q1

REPORT INFORMATION
  Report Type: Spontaneous
  Country: GB (occurrence: GB)
  Receive Date: 20170228
  Receipt Date: 20170228
  Transmission Date: 20170428
  Serious: Yes (Life-Threatening, Other)
  Sender: FDA-Public Use
  Company Number: GB-PFIZER INC-2017087122

PATIENT
  Age: 76 Year
  Sex: Male
  Weight: 59 kg

DRUGS (19)
  1. ALENDRONIC ACID [Concomitant]
     Active Substance: ALENDRONIC ACID
     Dosage: 70 MG, WEEKLY
     Dates: start: 20161209
  2. DERMOVATE [Concomitant]
     Active Substance: CLOBETASOL
     Dosage: UNK (APPLY 1-2 TIMES/DAY)
     Dates: start: 20161125
  3. DOXYCYCLINE. [Concomitant]
     Active Substance: DOXYCYCLINE
     Dosage: 100 MG, 1X/DAY
     Dates: start: 20161125
  4. DUTASTERIDE. [Concomitant]
     Active Substance: DUTASTERIDE
     Dosage: 500 UG, 1X/DAY
     Dates: start: 20161124
  5. IBUPROFEN. [Suspect]
     Active Substance: IBUPROFEN
     Indication: PALPITATIONS
     Dosage: 400 MG, AS NEEDED (3 TIMES A DAY)
     Route: 048
     Dates: start: 20170209, end: 20170213
  6. CO-DYDRAMOL [Concomitant]
     Active Substance: ACETAMINOPHEN\DIHYDROCODEINE
     Dosage: UNK (10MG/500MG . 1-2 FOUR TIMES A DAY)
     Dates: start: 20170202, end: 20170202
  7. DOUBLEBASE [Concomitant]
     Active Substance: ISOPROPYL MYRISTATE\PARAFFIN
     Dosage: UNK UNK, AS NEEDED (EMOLIENT SHOWER GEL)
     Dates: start: 20161209
  8. ERYTHROMYCIN. [Concomitant]
     Active Substance: ERYTHROMYCIN
     Dosage: 250 MG, 2X/DAY (AS STANDBY)
     Dates: start: 20170112
  9. SPIRIVA [Concomitant]
     Active Substance: TIOTROPIUM BROMIDE MONOHYDRATE
     Dosage: 18 UG, 1X/DAY
     Route: 055
     Dates: start: 20161209
  10. PREDNISOLONE. [Concomitant]
     Active Substance: PREDNISOLONE
     Dosage: 5 MG, 1X/DAY
     Dates: start: 20160823
  11. SYMBICORT [Concomitant]
     Active Substance: BUDESONIDE\FORMOTEROL FUMARATE DIHYDRATE
     Dosage: 2 DF, 1X/DAY (200/6)
     Dates: start: 20161124
  12. ADCAL D3 [Concomitant]
     Active Substance: CALCIUM CARBONATE\CHOLECALCIFEROL
     Dosage: 1 DF, DAILY
     Dates: start: 20150601
  13. DIAZEPAM. [Concomitant]
     Active Substance: DIAZEPAM
     Indication: ANXIETY
     Dosage: 2 MG, 1X/DAY (ONCE AT NIGHT)
     Dates: start: 20161129
  14. SALBUTAMOL [Concomitant]
     Active Substance: ALBUTEROL
     Dosage: UNK, AS NEEDED (5MG/2.5ML. )
     Dates: start: 20160719
  15. SALINE /00075401/ [Concomitant]
     Active Substance: SODIUM CHLORIDE
     Dosage: 2.5 ML, UNK (AS DIRECTED)
     Dates: start: 20160920
  16. AMITRIPTYLINE [Concomitant]
     Active Substance: AMITRIPTYLINE
     Dosage: 10 MG, 1X/DAY (NIGHT)
     Dates: start: 20170202
  17. TAMSULOSIN [Concomitant]
     Active Substance: TAMSULOSIN
     Dosage: 400 UG, 1X/DAY (MODIFIED-RELEASE CAPSULES)
     Dates: start: 20161124
  18. CARBOCISTEINE [Concomitant]
     Active Substance: CARBOCYSTEINE
     Dosage: 375 MG, AS NEEDED (375 MG, UNK (CAPSULES THREE TIMES A DAY))
     Dates: start: 20160920
  19. RAMIPRIL. [Concomitant]
     Active Substance: RAMIPRIL
     Dosage: 7.5 MG, 1X/DAY
     Dates: start: 20161209

REACTIONS (1)
  - Dyspnoea [Recovered/Resolved]

NARRATIVE: CASE EVENT DATE: 20170209
